FAERS Safety Report 17337209 (Version 3)
Quarter: 2020Q2

REPORT INFORMATION
  Report Type: Report from Study
  Country: US (occurrence: US)
  Receive Date: 20200129
  Receipt Date: 20200407
  Transmission Date: 20200713
  Serious: Yes (Hospitalization)
  Sender: FDA-Public Use
  Company Number: NVSC2020US018702

PATIENT
  Age: 63 Year
  Sex: Male

DRUGS (1)
  1. COSENTYX [Suspect]
     Active Substance: SECUKINUMAB
     Indication: PSORIATIC ARTHROPATHY
     Dosage: UNK
     Route: 065

REACTIONS (10)
  - Guttate psoriasis [Unknown]
  - Arthritis [Unknown]
  - Arthralgia [Unknown]
  - Cellulitis [Unknown]
  - Sepsis [Recovered/Resolved]
  - Rash [Unknown]
  - Movement disorder [Unknown]
  - Psoriasis [Unknown]
  - Drug ineffective [Unknown]
  - Feeling hot [Unknown]
